FAERS Safety Report 4730424-4 (Version None)
Quarter: 2005Q3

REPORT INFORMATION
  Report Type: 
  Country: None (occurrence: None)
  Receive Date: 20050801
  Receipt Date: 20050726
  Transmission Date: 20060218
  Serious: Yes (Life-Threatening, Hospitalization, Other)
  Sender: FDA-Public Use
  Company Number: US-MERCK-0507USA04211

PATIENT
  Age: 55 Year
  Sex: Female

DRUGS (2)
  1. VYTORIN [Suspect]
     Route: 048
  2. VYTORIN [Suspect]
     Route: 048
     Dates: end: 20050421

REACTIONS (1)
  - CEREBROVASCULAR ACCIDENT [None]
